FAERS Safety Report 9393946 (Version 1)
Quarter: 2013Q3

REPORT INFORMATION
  Report Type: Spontaneous
  Country: PH (occurrence: PH)
  Receive Date: 20130710
  Receipt Date: 20130710
  Transmission Date: 20140515
  Serious: Yes (Death)
  Sender: FDA-Public Use
  Company Number: PH-009507513-1307PHL002927

PATIENT
  Sex: Female

DRUGS (2)
  1. JANUMET [Suspect]
     Dosage: 1 TABLET ONCE A DAY
     Route: 048
  2. FOSAVANCE [Concomitant]

REACTIONS (2)
  - Diabetic complication [Fatal]
  - Inappropriate schedule of drug administration [Unknown]
